FAERS Safety Report 11253459 (Version 1)
Quarter: 2015Q3

REPORT INFORMATION
  Report Type: Spontaneous
  Country: CN (occurrence: None)
  Receive Date: 20150707
  Receipt Date: 20150707
  Transmission Date: 20151125
  Serious: Yes (Other)
  Sender: FDA-Public Use
  Company Number: CN2015GSK095421

PATIENT
  Age: 5 Year
  Sex: Male

DRUGS (1)
  1. HEPTODIN [Suspect]
     Active Substance: LAMIVUDINE
     Indication: HEPATITIS B
     Dosage: UNK, 3/5 TABLETS DAILY
     Route: 048
     Dates: start: 2012

REACTIONS (6)
  - Drug ineffective [None]
  - Cough [None]
  - Off label use [None]
  - Dyspnoea [None]
  - Hepatitis B [None]
  - Drug administration error [None]

NARRATIVE: CASE EVENT DATE: 2012
